FAERS Safety Report 8745886 (Version 3)
Quarter: 2014Q2

REPORT INFORMATION
  Report Type: Spontaneous
  Country: US (occurrence: US)
  Receive Date: 20120827
  Receipt Date: 20140414
  Transmission Date: 20141212
  Serious: No
  Sender: FDA-Public Use
  Company Number: US-PFIZER INC-2012205807

PATIENT
  Age: 58 Year
  Sex: Female

DRUGS (5)
  1. XALKORI [Suspect]
     Indication: LUNG NEOPLASM MALIGNANT
     Dosage: 250 MG, 2X/DAY
     Route: 048
     Dates: start: 20120423, end: 20120502
  2. XALKORI [Suspect]
     Dosage: 250 MG, 1X/DAY
     Route: 048
     Dates: start: 20120511
  3. XALKORI [Suspect]
     Dosage: 250 MG, 2 PILLS ONE DAY ALTERNATING WITH ONE PILL PER DAY
     Route: 048
     Dates: start: 20120604, end: 20120619
  4. XALKORI [Suspect]
     Dosage: 250 MG, 2X/DAY
     Route: 048
     Dates: start: 20120619
  5. VALTREX [Concomitant]
     Dosage: UNK

REACTIONS (5)
  - Visual impairment [Recovering/Resolving]
  - Cardiovascular disorder [Unknown]
  - Oedema peripheral [Recovering/Resolving]
  - Paraesthesia [Unknown]
  - Oesophageal pain [Unknown]
